FAERS Safety Report 14770041 (Version 2)
Quarter: 2018Q2

REPORT INFORMATION
  Report Type: Spontaneous
  Country: US (occurrence: US)
  Receive Date: 20180417
  Receipt Date: 20180420
  Transmission Date: 20180711
  Serious: Yes (Hospitalization, Other)
  Sender: FDA-Public Use
  Company Number: US-IMPAX LABORATORIES, INC-2018-IPXL-01192

PATIENT
  Age: 65 Year
  Sex: Female

DRUGS (4)
  1. BUPIVACAINE. [Concomitant]
     Active Substance: BUPIVACAINE
     Indication: LOCAL ANAESTHESIA
     Dosage: 10 ML, 0.25%; GIVEN AT 8 AM
     Route: 058
  2. LIDOCAINE. [Concomitant]
     Active Substance: LIDOCAINE
     Dosage: 1 ML OF 2%; GIVEN AT 10:35 PM; ALONG WITH PHENTOLAMINE
     Route: 058
  3. LIDOCAINE. [Concomitant]
     Active Substance: LIDOCAINE
     Indication: LOCAL ANAESTHESIA
     Dosage: 10 ML; 1%; GIVEN AT 8 AM
     Route: 058
  4. ADRENACLICK [Suspect]
     Active Substance: EPINEPHRINE
     Indication: VASOCONSTRICTION
     Dosage: 1:100,000; GIVEN AT 8 AM
     Route: 058

REACTIONS (1)
  - Injection site ischaemia [Recovered/Resolved]
